FAERS Safety Report 6887971-9 (Version None)
Quarter: 2010Q3

REPORT INFORMATION
  Report Type: 
  Country: None (occurrence: None)
  Receive Date: 20100730
  Receipt Date: 20100720
  Transmission Date: 20110219
  Serious: Yes (Hospitalization)
  Sender: FDA-Public Use
  Company Number: A0867093A

PATIENT
  Age: 80 Year
  Sex: Female
  Weight: 86.4 kg

DRUGS (10)
  1. AVANDIA [Suspect]
     Dosage: 4MG PER DAY
     Route: 048
     Dates: end: 20051201
  2. UNIVASC [Concomitant]
  3. ZOCOR [Concomitant]
  4. NORVASC [Concomitant]
  5. DEMADEX [Concomitant]
  6. FOSAMAX [Concomitant]
  7. ALLOPURINOL [Concomitant]
  8. AMBIEN [Concomitant]
  9. NEXIUM [Concomitant]
  10. BENICAR [Concomitant]
     Dates: end: 20051201

REACTIONS (6)
  - ATRIOVENTRICULAR BLOCK COMPLETE [None]
  - CARDIAC FAILURE CONGESTIVE [None]
  - CEREBROVASCULAR ACCIDENT [None]
  - EYE DISORDER [None]
  - MYOCARDIAL INFARCTION [None]
  - TRANSIENT ISCHAEMIC ATTACK [None]
